FAERS Safety Report 24953183 (Version 2)
Quarter: 2025Q2

REPORT INFORMATION
  Report Type: Spontaneous
  Country: US (occurrence: US)
  Receive Date: 20250211
  Receipt Date: 20250513
  Transmission Date: 20250717
  Serious: Yes (Other)
  Sender: BRISTOL-MYERS SQUIBB COMPANY
  Company Number: US-BRISTOL-MYERS SQUIBB COMPANY-2025-016911

PATIENT
  Age: 64 Year
  Sex: Female

DRUGS (3)
  1. IPILIMUMAB [Suspect]
     Active Substance: IPILIMUMAB
     Indication: Ocular melanoma
     Dates: start: 202103, end: 202105
  2. NIVOLUMAB [Suspect]
     Active Substance: NIVOLUMAB
     Indication: Ocular melanoma
     Dates: start: 202103, end: 202105
  3. NIVOLUMAB [Suspect]
     Active Substance: NIVOLUMAB
     Dates: start: 202105, end: 202108

REACTIONS (1)
  - Immune-mediated lung disease [Unknown]

NARRATIVE: CASE EVENT DATE: 20230202
